FAERS Safety Report 14349649 (Version 1)
Quarter: 2018Q1

REPORT INFORMATION
  Report Type: Report from Study
  Country: JP (occurrence: JP)
  Receive Date: 20180104
  Receipt Date: 20180104
  Transmission Date: 20180509
  Serious: Yes (Other)
  Sender: FDA-Public Use
  Company Number: JP-SUN PHARMACEUTICAL INDUSTRIES LTD-2017RR-158889

PATIENT

DRUGS (3)
  1. IRINOTECAN [Suspect]
     Active Substance: IRINOTECAN
     Indication: RECURRENT CANCER
     Dosage: RANGE: 5-22 CYCLES
     Route: 065
     Dates: start: 2015, end: 2017
  2. TEMOZOLOMIDE. [Suspect]
     Active Substance: TEMOZOLOMIDE
     Indication: RECURRENT CANCER
     Dosage: RANGE: 5-22 CYCLES
     Route: 065
     Dates: start: 2015, end: 2017
  3. BEVACIZUMAB. [Suspect]
     Active Substance: BEVACIZUMAB
     Indication: RECURRENT CANCER
     Dosage: RANGE: 5-22 CYCLES
     Route: 065
     Dates: start: 2015, end: 2017

REACTIONS (4)
  - Drug effect incomplete [Unknown]
  - Lower gastrointestinal haemorrhage [Recovering/Resolving]
  - Proteinuria [Recovering/Resolving]
  - Therapy partial responder [Unknown]
